FAERS Safety Report 24312918 (Version 2)
Quarter: 2024Q3

REPORT INFORMATION
  Report Type: Spontaneous
  Country: US (occurrence: US)
  Receive Date: 20240912
  Receipt Date: 20240925
  Transmission Date: 20241016
  Serious: Yes (Other)
  Sender: TEVA
  Company Number: US-TEVA-VS-3240111

PATIENT
  Age: 69 Year
  Sex: Female

DRUGS (13)
  1. CARBOPLATIN [Suspect]
     Active Substance: CARBOPLATIN
     Indication: Ovarian cancer stage III
     Route: 065
     Dates: start: 20180612, end: 20180911
  2. CARBOPLATIN [Suspect]
     Active Substance: CARBOPLATIN
     Indication: Ovarian cancer stage III
     Dosage: 12 CYCLES
     Route: 065
     Dates: start: 20160513, end: 20170327
  3. SACITUZUMAB GOVITECAN [Suspect]
     Active Substance: SACITUZUMAB GOVITECAN
     Indication: Ovarian cancer stage III
     Dosage: ON DAY?1 AND 8 OF A 21?DAY CYCLE; 8 CYCLES
     Route: 065
     Dates: start: 20231201
  4. TRASTUZUMAB [Suspect]
     Active Substance: TRASTUZUMAB
     Indication: Ovarian cancer stage III
     Route: 065
     Dates: start: 20201030, end: 20210416
  5. CYCLOPHOSPHAMIDE [Concomitant]
     Active Substance: CYCLOPHOSPHAMIDE
     Indication: Ovarian cancer stage III
     Dosage: 6 CYCLES
     Route: 065
     Dates: start: 20220930, end: 20230210
  6. GEMCITABINE [Suspect]
     Active Substance: GEMCITABINE
     Indication: Ovarian cancer stage III
     Dosage: 12 CYCLES
     Route: 065
     Dates: start: 20160513, end: 20170327
  7. NIRAPARIB [Suspect]
     Active Substance: NIRAPARIB
     Indication: Ovarian cancer stage III
     Route: 065
     Dates: start: 20181101, end: 20200812
  8. BEVACIZUMAB [Suspect]
     Active Substance: BEVACIZUMAB
     Indication: Ovarian cancer stage III
     Dosage: MAINTENANCE
     Route: 065
     Dates: start: 20170328, end: 20180406
  9. BEVACIZUMAB [Suspect]
     Active Substance: BEVACIZUMAB
     Indication: Ovarian cancer stage III
     Route: 065
     Dates: start: 20230224, end: 20231117
  10. BEVACIZUMAB [Suspect]
     Active Substance: BEVACIZUMAB
     Indication: Ovarian cancer stage III
     Dosage: 12 CYCLES
     Route: 065
     Dates: start: 20160513, end: 20170327
  11. PACLITAXEL [Suspect]
     Active Substance: PACLITAXEL
     Indication: Ovarian cancer stage III
     Route: 065
     Dates: start: 20210507, end: 20220909
  12. PACLITAXEL [Suspect]
     Active Substance: PACLITAXEL
     Indication: Ovarian cancer stage III
     Dosage: 6 CYCLES
     Route: 065
     Dates: start: 20220930, end: 20230210
  13. IXABEPILONE [Suspect]
     Active Substance: IXABEPILONE
     Indication: Ovarian cancer stage III
     Route: 065
     Dates: start: 20230224, end: 20231117

REACTIONS (6)
  - Myelosuppression [Unknown]
  - Proteinuria [Unknown]
  - Off label use [Unknown]
  - Gastrointestinal disorder [Unknown]
  - Drug ineffective [Unknown]
  - Hypertension [Unknown]
